FAERS Safety Report 8041423-1 (Version None)
Quarter: 2012Q1

REPORT INFORMATION
  Report Type: 
  Country: None (occurrence: None)
  Receive Date: 20120112
  Receipt Date: 20120105
  Transmission Date: 20120608
  Serious: Yes (Hospitalization, Other)
  Sender: FDA-Public Use
  Company Number: US-BAYER-2011-052623

PATIENT
  Age: 25 Year
  Sex: Female
  Weight: 73 kg

DRUGS (5)
  1. OXYCODONE HCL [Concomitant]
     Indication: PAIN
     Dosage: 5/325 MG, QD
     Route: 048
     Dates: start: 20070628, end: 20070717
  2. ACETAMINOPHEN [Concomitant]
  3. CYCLOBENZAPRINE [Concomitant]
     Indication: MUSCLE RELAXANT THERAPY
     Dosage: 10 MG, QD
     Route: 048
     Dates: start: 20070624, end: 20070801
  4. NAPROXEN [Concomitant]
     Indication: PAIN
     Dosage: 500 MG, QD
     Route: 048
     Dates: start: 20070628, end: 20070727
  5. YASMIN [Suspect]
     Indication: CONTRACEPTION
     Dosage: UNK
     Route: 048
     Dates: start: 20070323, end: 20070801

REACTIONS (10)
  - SYNCOPE [None]
  - LOSS OF CONSCIOUSNESS [None]
  - INJURY [None]
  - VITAMIN B12 DEFICIENCY [None]
  - PULMONARY EMBOLISM [None]
  - ANXIETY [None]
  - OVARIAN CYST [None]
  - HYPERCOAGULATION [None]
  - DEEP VEIN THROMBOSIS [None]
  - PAIN [None]
